FAERS Safety Report 9240418 (Version 1)
Quarter: 2013Q2

REPORT INFORMATION
  Report Type: Spontaneous
  Country: ES (occurrence: None)
  Receive Date: 20130417
  Receipt Date: 20130417
  Transmission Date: 20140414
  Serious: Yes (Other)
  Sender: FDA-Public Use
  Company Number: 2013AP004319

PATIENT
  Age: 92 Year
  Sex: Female

DRUGS (1)
  1. ATORVASTATIN (ATORVASTATIN) [Suspect]
     Indication: DYSLIPIDAEMIA
     Dosage: 40 MG;TAB_FILM;PO;QD
     Route: 048
     Dates: start: 20130221, end: 20130228

REACTIONS (1)
  - Hallucinations, mixed [None]
